FAERS Safety Report 19396973 (Version 1)
Quarter: 2021Q2

REPORT INFORMATION
  Report Type: Spontaneous
  Country: DE (occurrence: DE)
  Receive Date: 20210609
  Receipt Date: 20210609
  Transmission Date: 20210717
  Serious: Yes (Hospitalization)
  Sender: FDA-Public Use
  Company Number: DE-GILEAD-2021-0534777

PATIENT
  Sex: Female
  Weight: 80 kg

DRUGS (14)
  1. HEPARIN [Concomitant]
     Active Substance: HEPARIN SODIUM
     Dosage: UNK
     Dates: start: 20210509, end: 20210531
  2. PROPOFOL. [Concomitant]
     Active Substance: PROPOFOL
     Indication: SEDATION
     Dosage: UNK
     Dates: start: 20210510, end: 20210516
  3. DEXAMETHASONE DIPROPIONATE [Concomitant]
     Active Substance: DEXAMETHASONE DIPROPIONATE
     Indication: COVID-19
     Dosage: UNK
     Dates: start: 20210510, end: 20210520
  4. NOREPINEPHRINE. [Concomitant]
     Active Substance: NOREPINEPHRINE
     Indication: HYPOTENSION
     Dosage: UNK
     Dates: start: 20210514, end: 20210531
  5. SUFENTANIL [Concomitant]
     Active Substance: SUFENTANIL
     Indication: SEDATION
     Dosage: UNK
     Dates: start: 20210510, end: 20210531
  6. MIDAZOLAM. [Concomitant]
     Active Substance: MIDAZOLAM
     Indication: SEDATION
     Dosage: UNK
     Dates: start: 20210516, end: 20210531
  7. ILOPROST. [Concomitant]
     Active Substance: ILOPROST
     Dosage: UNK
     Dates: start: 20210519, end: 20210522
  8. VANCOMYCIN [Concomitant]
     Active Substance: VANCOMYCIN
     Dosage: UNK
     Dates: start: 20210522, end: 20210531
  9. MEROPENEN [Concomitant]
     Dosage: UNK
     Dates: start: 20210522, end: 20210524
  10. VEKLURY [Suspect]
     Active Substance: REMDESIVIR
     Indication: COVID-19
     Dosage: UNK
     Route: 042
     Dates: start: 20210516, end: 20210521
  11. AMIODARON [AMIODARONE] [Concomitant]
     Active Substance: AMIODARONE
     Indication: ARRHYTHMIA
     Dosage: UNK
     Dates: start: 20210516
  12. PIPERACILLIN AND TAZOBACTAM [Concomitant]
     Active Substance: PIPERACILLIN SODIUM\TAZOBACTAM SODIUM
     Dosage: UNK
     Dates: start: 20210516, end: 20210522
  13. ESKETAMINE [Concomitant]
     Active Substance: ESKETAMINE
     Dosage: UNK
     Dates: start: 20210522, end: 20210531
  14. LINEZOLID. [Concomitant]
     Active Substance: LINEZOLID
     Dosage: UNK
     Dates: start: 20210524, end: 20210531

REACTIONS (1)
  - Unevaluable event [Unknown]

NARRATIVE: CASE EVENT DATE: 20210516
